FAERS Safety Report 25893846 (Version 1)
Quarter: 2025Q4

REPORT INFORMATION
  Report Type: Spontaneous
  Country: US (occurrence: US)
  Receive Date: 20251008
  Receipt Date: 20251008
  Transmission Date: 20260118
  Serious: Yes (Other)
  Sender: NOVARTIS
  Company Number: US-002147023-NVSC2025US149254

PATIENT
  Sex: Male

DRUGS (1)
  1. ENTRESTO [Suspect]
     Active Substance: SACUBITRIL\VALSARTAN
     Indication: Ejection fraction
     Dosage: UNK, BID (24/26 MG)
     Route: 065
     Dates: start: 202504

REACTIONS (4)
  - Depressed level of consciousness [Unknown]
  - Disturbance in attention [Unknown]
  - Quality of life decreased [Unknown]
  - Depressed mood [Unknown]
